FAERS Safety Report 4658826-5 (Version None)
Quarter: 2005Q2

REPORT INFORMATION
  Report Type: 
  Country: None (occurrence: None)
  Receive Date: 20050509
  Receipt Date: 20050426
  Transmission Date: 20051028
  Serious: Yes (Other)
  Sender: FDA-Public Use
  Company Number: 2005067263

PATIENT
  Age: 36 Year
  Sex: Female
  Weight: 57.6068 kg

DRUGS (1)
  1. DEPO-PROVERA [Suspect]
     Indication: CONTRACEPTION
     Dosage: 150 MG (150 MG, FIRST INJECTION/EVERY 10-13 WKS), INTRAMUSCULAR
     Route: 030
     Dates: start: 20050215, end: 20050215

REACTIONS (10)
  - ABNORMAL BEHAVIOUR [None]
  - AGGRESSION [None]
  - ALCOHOL PROBLEM [None]
  - AMNESIA [None]
  - ANXIETY [None]
  - CRYING [None]
  - IMPAIRED DRIVING ABILITY [None]
  - LEGAL PROBLEM [None]
  - LOSS OF EMPLOYMENT [None]
  - VAGINAL PAIN [None]
